FAERS Safety Report 7399542-9 (Version None)
Quarter: 2011Q1

REPORT INFORMATION
  Report Type: 
  Country: None (occurrence: None)
  Receive Date: 20110329
  Receipt Date: 20110317
  Transmission Date: 20110831
  Serious: Yes (Hospitalization)
  Sender: FDA-Public Use
  Company Number: UTC-005770

PATIENT
  Age: 74 Year
  Sex: Male
  Weight: 72.7 kg

DRUGS (2)
  1. COUMADIN [Concomitant]
  2. REMODULIN [Suspect]
     Indication: PULMONARY ARTERIAL HYPERTENSION
     Dosage: 169.92 UG/KG (0.118 UG/KG, 1 IN 1 MIN, INTRAVENOUS)
     Route: 042
     Dates: start: 20100519

REACTIONS (4)
  - DEHYDRATION [None]
  - PAIN IN EXTREMITY [None]
  - DECREASED APPETITE [None]
  - OXYGEN SATURATION DECREASED [None]
